FAERS Safety Report 14706052 (Version 2)
Quarter: 2018Q2

REPORT INFORMATION
  Report Type: Spontaneous
  Country: US (occurrence: US)
  Receive Date: 20180402
  Receipt Date: 20180403
  Transmission Date: 20180711
  Serious: No
  Sender: FDA-Public Use
  Company Number: US-PFIZER INC-2018129497

PATIENT
  Age: 61 Year
  Sex: Male
  Weight: 108.8 kg

DRUGS (1)
  1. CHANTIX [Suspect]
     Active Substance: VARENICLINE TARTRATE
     Indication: SMOKING CESSATION THERAPY
     Dosage: UNK (TWICE)
     Route: 048
     Dates: start: 20180327

REACTIONS (2)
  - Condition aggravated [Not Recovered/Not Resolved]
  - Phantom pain [Not Recovered/Not Resolved]

NARRATIVE: CASE EVENT DATE: 201803
